FAERS Safety Report 9307197 (Version 1)
Quarter: 2013Q2

REPORT INFORMATION
  Report Type: Report from Study
  Country: AR (occurrence: AR)
  Receive Date: 20130524
  Receipt Date: 20130524
  Transmission Date: 20140414
  Serious: Yes (Hospitalization, Other)
  Sender: FDA-Public Use
  Company Number: AR-ROCHE-1227410

PATIENT
  Sex: Female

DRUGS (1)
  1. RANIBIZUMAB [Suspect]
     Indication: DIABETIC EYE DISEASE
     Route: 050
     Dates: start: 2010, end: 2010

REACTIONS (5)
  - Localised infection [Recovering/Resolving]
  - Osteomyelitis [Unknown]
  - Amnesia [Unknown]
  - Eye haemorrhage [Unknown]
  - Visual acuity reduced [Unknown]
